FAERS Safety Report 23781394 (Version 1)
Quarter: 2024Q2

REPORT INFORMATION
  Report Type: Report from Study
  Country: US (occurrence: US)
  Receive Date: 20240425
  Receipt Date: 20240425
  Transmission Date: 20240716
  Serious: Yes (Hospitalization)
  Sender: FDA-Public Use
  Company Number: US-BIOGEN-2024BI01261433

PATIENT
  Sex: Female

DRUGS (1)
  1. SKYCLARYS [Suspect]
     Active Substance: OMAVELOXOLONE
     Indication: Friedreich^s ataxia
     Dosage: EVENING
     Route: 050
     Dates: start: 20231228

REACTIONS (4)
  - Blood pressure decreased [Unknown]
  - Brain natriuretic peptide increased [Unknown]
  - Gastrointestinal infection [Unknown]
  - Haematemesis [Unknown]
